FAERS Safety Report 10551635 (Version 1)
Quarter: 2014Q4

REPORT INFORMATION
  Report Type: Spontaneous
  Country: US (occurrence: US)
  Receive Date: 20141029
  Receipt Date: 20141029
  Transmission Date: 20150529
  Serious: Yes (Other)
  Sender: FDA-Public Use
  Company Number: PHEH2014US021014

PATIENT
  Age: 60 Year
  Sex: Male
  Weight: 85.5 kg

DRUGS (1)
  1. NILOTINIB [Suspect]
     Active Substance: NILOTINIB
     Indication: CHRONIC MYELOID LEUKAEMIA
     Dosage: 400 MG, BID
     Route: 048
     Dates: start: 20110802

REACTIONS (5)
  - Chronic myeloid leukaemia [Unknown]
  - Second primary malignancy [Unknown]
  - Malignant neoplasm progression [Unknown]
  - Confusional state [Not Recovered/Not Resolved]
  - Waldenstrom^s macroglobulinaemia [Unknown]

NARRATIVE: CASE EVENT DATE: 201408
